FAERS Safety Report 9101255 (Version 1)
Quarter: 2013Q1

REPORT INFORMATION
  Report Type: Spontaneous
  Country: US (occurrence: US)
  Receive Date: 20130215
  Receipt Date: 20130215
  Transmission Date: 20140127
  Serious: Yes (Other)
  Sender: FDA-Public Use
  Company Number: US-PFIZER INC-2013059191

PATIENT
  Age: 56 Year
  Sex: Female
  Weight: 70.75 kg

DRUGS (1)
  1. LYRICA [Suspect]
     Indication: FIBROMYALGIA
     Dosage: 50 MG, 2X/DAY
     Route: 048

REACTIONS (8)
  - Hypertension [Unknown]
  - Blood cholesterol increased [Unknown]
  - Cardiac disorder [Recovering/Resolving]
  - Hot flush [Recovering/Resolving]
  - Paraesthesia [Recovering/Resolving]
  - Feeling cold [Recovering/Resolving]
  - Peripheral coldness [Recovering/Resolving]
  - Feeling hot [Recovering/Resolving]
